FAERS Safety Report 4827628-9 (Version None)
Quarter: 2005Q4

REPORT INFORMATION
  Report Type: 
  Country: None (occurrence: None)
  Receive Date: 20051110
  Receipt Date: 20051107
  Transmission Date: 20060501
  Serious: Yes (Hospitalization)
  Sender: FDA-Public Use
  Company Number: 2005AL004532

PATIENT
  Age: 68 Year
  Sex: Female

DRUGS (4)
  1. SERAX [Suspect]
     Dates: end: 20050803
  2. IXPRIM [Suspect]
     Dosage: PO
     Route: 048
     Dates: end: 20050803
  3. LAROXYL [Suspect]
     Dosage: PO
     Route: 048
     Dates: end: 20050803
  4. NEURONTIN [Suspect]
     Dosage: PO
     Route: 048
     Dates: end: 20050803

REACTIONS (4)
  - CEREBRAL DISORDER [None]
  - DRUG WITHDRAWAL SYNDROME [None]
  - ENCEPHALITIS [None]
  - NEUROLEPTIC MALIGNANT SYNDROME [None]
